FAERS Safety Report 11971510 (Version 3)
Quarter: 2019Q4

REPORT INFORMATION
  Report Type: Spontaneous
  Country: US (occurrence: US)
  Receive Date: 20160128
  Receipt Date: 20191021
  Transmission Date: 20200122
  Serious: Yes (Other)
  Sender: FDA-Public Use
  Company Number: US-PFIZER INC-2016045537

PATIENT
  Age: 66 Year
  Sex: Male

DRUGS (6)
  1. VIAGRA [Suspect]
     Active Substance: SILDENAFIL CITRATE
     Dosage: 100 MG, (ONE TABLET 30 MINUTES TO 1 HOUR BEFORE SEX)
     Route: 048
     Dates: start: 20090602
  2. VIAGRA [Suspect]
     Active Substance: SILDENAFIL CITRATE
     Dosage: UNK
     Dates: start: 20100624, end: 20111110
  3. VIAGRA [Suspect]
     Active Substance: SILDENAFIL CITRATE
     Indication: BENIGN PROSTATIC HYPERPLASIA
     Dosage: UNK
     Dates: start: 20040515, end: 201407
  4. CIALIS [Suspect]
     Active Substance: TADALAFIL
     Indication: BENIGN PROSTATIC HYPERPLASIA
     Dosage: 20 MG, EVERY 2 WEEKS
     Dates: start: 20040515, end: 20131009
  5. FLOMAX [Concomitant]
     Active Substance: TAMSULOSIN HYDROCHLORIDE
     Indication: BENIGN PROSTATIC HYPERPLASIA
     Dosage: 0.4 MG, 2X/DAY
     Dates: start: 20060620
  6. VIAGRA [Suspect]
     Active Substance: SILDENAFIL CITRATE
     Dosage: 100 MG, EVERY 2 WEEKS
     Dates: start: 20040515, end: 20110620

REACTIONS (2)
  - Malignant melanoma [Unknown]
  - Lentigo maligna [Unknown]

NARRATIVE: CASE EVENT DATE: 20130903
